FAERS Safety Report 7135541-X (Version None)
Quarter: 2010Q4

REPORT INFORMATION
  Report Type: 
  Country: None (occurrence: None)
  Receive Date: 20101203
  Receipt Date: 20101122
  Transmission Date: 20110411
  Serious: Yes (Hospitalization)
  Sender: FDA-Public Use
  Company Number: US-ELI_LILLY_AND_COMPANY-US201010002405

PATIENT
  Age: 22 Year
  Sex: Female
  Weight: 73.651 kg

DRUGS (6)
  1. STRATTERA [Suspect]
     Indication: ATTENTION DEFICIT/HYPERACTIVITY DISORDER
     Dosage: 25 MG, UNK
     Dates: start: 20100902, end: 20100909
  2. STRATTERA [Suspect]
     Dosage: 80 MG, UNK
     Dates: start: 20100910, end: 20101018
  3. RISPERDAL [Concomitant]
     Indication: AFFECTIVE DISORDER
     Dosage: 1 MG, DAILY (1/D)
  4. LITHIUM [Concomitant]
     Indication: AFFECTIVE DISORDER
     Dosage: 450 D/F, 2/D
  5. KLONOPIN [Concomitant]
     Indication: AFFECTIVE DISORDER
     Dosage: 2 MG, EACH EVENING
  6. NAPROXEN [Concomitant]
     Dosage: 500 MG, UNK

REACTIONS (3)
  - INSOMNIA [None]
  - MANIA [None]
  - SUICIDAL IDEATION [None]
